FAERS Safety Report 12476892 (Version 1)
Quarter: 2016Q2

REPORT INFORMATION
  Report Type: Spontaneous
  Country: US (occurrence: US)
  Receive Date: 20160617
  Receipt Date: 20160617
  Transmission Date: 20160815
  Serious: Yes (Disabling)
  Sender: FDA-Public Use
  Company Number: US-PFIZER INC-2016307177

PATIENT
  Age: 36 Year
  Sex: Female
  Weight: 54 kg

DRUGS (11)
  1. CELEBREX [Suspect]
     Active Substance: CELECOXIB
     Indication: TENDONITIS
  2. CELEBREX [Suspect]
     Active Substance: CELECOXIB
     Indication: BURSITIS
  3. CELECOXIB. [Suspect]
     Active Substance: CELECOXIB
     Indication: UNDIFFERENTIATED CONNECTIVE TISSUE DISEASE
  4. CELEBREX [Suspect]
     Active Substance: CELECOXIB
     Indication: UNDIFFERENTIATED CONNECTIVE TISSUE DISEASE
  5. CELECOXIB. [Suspect]
     Active Substance: CELECOXIB
     Indication: ARTHRALGIA
  6. METHOTREXATE SODIUM. [Suspect]
     Active Substance: METHOTREXATE SODIUM
     Dosage: UNK
  7. CELEBREX [Suspect]
     Active Substance: CELECOXIB
     Indication: ARTHRITIS
     Dosage: 200 MG, FREQ: 2 DAY; INTERVAL: 1
  8. CELECOXIB. [Suspect]
     Active Substance: CELECOXIB
     Indication: TENDONITIS
     Dosage: 200 MG, FREQ: 2 DAY; INTERVAL: 1
     Dates: start: 20150126
  9. CELECOXIB. [Suspect]
     Active Substance: CELECOXIB
     Indication: BURSITIS
     Dosage: 200 MG, FREQ: 2 DAY; INTERVAL: 1
     Dates: start: 20150401
  10. CELECOXIB. [Suspect]
     Active Substance: CELECOXIB
     Indication: ARTHRITIS
  11. CELEBREX [Suspect]
     Active Substance: CELECOXIB
     Indication: ARTHRALGIA

REACTIONS (5)
  - Abdominal pain upper [Recovering/Resolving]
  - Arthralgia [Recovering/Resolving]
  - Drug ineffective [Recovering/Resolving]
  - Neck pain [Recovering/Resolving]
  - Malaise [Unknown]

NARRATIVE: CASE EVENT DATE: 2015
